FAERS Safety Report 9206433 (Version 2)
Quarter: 2013Q2

REPORT INFORMATION
  Report Type: Spontaneous
  Country: JP (occurrence: None)
  Receive Date: 20130401
  Receipt Date: 20130404
  Transmission Date: 20140414
  Serious: Yes (Hospitalization)
  Sender: FDA-Public Use
  Company Number: FK201300943

PATIENT
  Age: 56 Year
  Sex: Male

DRUGS (2)
  1. CISPLATIN [Suspect]
     Indication: GASTRIC CANCER
  2. GIMERACIL/OTERACIL/TEGAFUR [Suspect]
     Indication: GASTRIC CANCER
     Dosage: 40 MG/M2, 0.4:1:1

REACTIONS (3)
  - Venoocclusive liver disease [None]
  - Thrombocytopenia [None]
  - Splenomegaly [None]
